FAERS Safety Report 10484831 (Version 3)
Quarter: 2014Q4

REPORT INFORMATION
  Report Type: Spontaneous
  Country: GB (occurrence: GB)
  Receive Date: 20140930
  Receipt Date: 20141030
  Transmission Date: 20150528
  Serious: Yes (Hospitalization)
  Sender: FDA-Public Use
  Company Number: PHFR2014GB006495

PATIENT
  Age: 68 Year
  Sex: Female

DRUGS (1)
  1. CLOZARIL [Suspect]
     Active Substance: CLOZAPINE
     Indication: SCHIZOPHRENIA
     Dosage: 250 (UNIT UNSPECIFIED), DAILY
     Route: 048
     Dates: start: 20010701, end: 20140914

REACTIONS (7)
  - Malaise [Unknown]
  - Left ventricular hypertrophy [Unknown]
  - Renal impairment [Recovering/Resolving]
  - Decreased appetite [Unknown]
  - Urinary tract infection [Recovered/Resolved]
  - Polydipsia [Unknown]
  - Regurgitation [Unknown]

NARRATIVE: CASE EVENT DATE: 20140901
